FAERS Safety Report 25329346 (Version 1)
Quarter: 2025Q2

REPORT INFORMATION
  Report Type: Spontaneous
  Country: US (occurrence: US)
  Receive Date: 20250519
  Receipt Date: 20250519
  Transmission Date: 20250716
  Serious: Yes (Other)
  Sender: COOPERSURGICAL
  Company Number: US-COOPERSURGICAL, INC.-2025CPS003857

PATIENT
  Sex: Female
  Weight: 129.25 kg

DRUGS (3)
  1. PARAGARD T 380A [Suspect]
     Active Substance: COPPER
     Indication: Contraception
     Route: 015
     Dates: start: 20071001
  2. INSULIN NOS [Concomitant]
     Active Substance: INSULIN NOS
     Dates: start: 20170601
  3. METFORMIN [Concomitant]
     Active Substance: METFORMIN HYDROCHLORIDE
     Dates: start: 20160101

REACTIONS (8)
  - Uterine leiomyoma [Unknown]
  - Device breakage [Not Recovered/Not Resolved]
  - Foreign body in reproductive tract [Not Recovered/Not Resolved]
  - Complication of device removal [Not Recovered/Not Resolved]
  - Pelvic pain [Not Recovered/Not Resolved]
  - Abnormal uterine bleeding [Not Recovered/Not Resolved]
  - Intentional device use issue [Unknown]
  - Off label use [Unknown]

NARRATIVE: CASE EVENT DATE: 20090101
